FAERS Safety Report 20937769 (Version 1)
Quarter: 2022Q2

REPORT INFORMATION
  Report Type: Spontaneous
  Country: CN (occurrence: CN)
  Receive Date: 20220609
  Receipt Date: 20220609
  Transmission Date: 20220721
  Serious: Yes (Hospitalization, Other)
  Sender: FDA-Public Use
  Company Number: CN-ELI_LILLY_AND_COMPANY-CN202206000528

PATIENT
  Age: 68 Year
  Sex: Female
  Weight: 59 kg

DRUGS (5)
  1. HUMULIN R [Suspect]
     Active Substance: INSULIN HUMAN
     Indication: Type 2 diabetes mellitus
     Dosage: UNK UNK, BID
     Route: 058
     Dates: start: 1992
  2. NOVOLIN R [Concomitant]
     Active Substance: INSULIN HUMAN
     Indication: Type 2 diabetes mellitus
     Dosage: UNK UNK, BID
     Route: 058
     Dates: start: 1992
  3. GLUCOPHAGE [Concomitant]
     Active Substance: METFORMIN HYDROCHLORIDE
     Indication: Type 2 diabetes mellitus
     Dosage: 1 DOSAGE FORM, DAILY (NOON)
     Route: 048
  4. INSULIN ASPART 30 [Concomitant]
     Indication: Type 2 diabetes mellitus
     Dosage: 30 U, EACH MORNING
     Route: 058
     Dates: start: 2018
  5. INSULIN ASPART 30 [Concomitant]
     Dosage: 30 U, DAILY (NIGHT)
     Route: 058
     Dates: start: 2018

REACTIONS (5)
  - Cardiac disorder [Unknown]
  - Cerebral thrombosis [Unknown]
  - Memory impairment [Unknown]
  - Dysgraphia [Unknown]
  - Motor dysfunction [Unknown]
